FAERS Safety Report 14113808 (Version 1)
Quarter: 2017Q4

REPORT INFORMATION
  Report Type: Spontaneous
  Country: US (occurrence: US)
  Receive Date: 20171023
  Receipt Date: 20171023
  Transmission Date: 20180321
  Serious: Yes (Other)
  Sender: FDA-Public Use
  Company Number: PHEH2017US032927

PATIENT
  Sex: Female
  Weight: 60.3 kg

DRUGS (3)
  1. KISQALI [Suspect]
     Active Substance: RIBOCICLIB
     Dosage: 600 MG, UNK
     Route: 048
  2. KISQALI [Suspect]
     Active Substance: RIBOCICLIB
     Indication: BREAST CANCER METASTATIC
     Dosage: 600 MG, QD (CYCLE 2)
     Route: 048
     Dates: end: 20170927
  3. KISQALI [Suspect]
     Active Substance: RIBOCICLIB
     Indication: BREAST CANCER RECURRENT
     Dosage: 600 MG, QD (CYCLE 1)
     Route: 048
     Dates: start: 20170808

REACTIONS (5)
  - Rash macular [Unknown]
  - Rash [Unknown]
  - Pruritus [Unknown]
  - Rash pruritic [Unknown]
  - Rash erythematous [Unknown]
